FAERS Safety Report 16236983 (Version 1)
Quarter: 2019Q2

REPORT INFORMATION
  Report Type: Spontaneous
  Country: US (occurrence: US)
  Receive Date: 20190425
  Receipt Date: 20190425
  Transmission Date: 20190711
  Serious: No
  Sender: FDA-Public Use
  Company Number: US-AMGEN INC.-USASP2019065290

PATIENT

DRUGS (1)
  1. AIMOVIG [Suspect]
     Active Substance: ERENUMAB-AOOE
     Indication: HEADACHE
     Dosage: UNK
     Route: 065

REACTIONS (12)
  - Decreased appetite [Unknown]
  - Dizziness [Unknown]
  - Initial insomnia [Unknown]
  - Paraesthesia [Unknown]
  - Hypertension [Unknown]
  - Anxiety [Unknown]
  - Dry mouth [Unknown]
  - Back pain [Unknown]
  - Fatigue [Unknown]
  - Nausea [Unknown]
  - Heart rate increased [Unknown]
  - Therapy non-responder [Unknown]
